FAERS Safety Report 9297958 (Version 2)
Quarter: 2013Q3

REPORT INFORMATION
  Report Type: Spontaneous
  Country: US (occurrence: US)
  Receive Date: 20130520
  Receipt Date: 20130730
  Transmission Date: 20140515
  Serious: Yes (Other)
  Sender: FDA-Public Use
  Company Number: US-JNJFOC-20130507415

PATIENT
  Sex: Male

DRUGS (7)
  1. STELARA [Suspect]
     Indication: PSORIASIS
     Dosage: 2 DOSES
     Route: 058
     Dates: start: 20130415
  2. STELARA [Suspect]
     Indication: PSORIASIS
     Dosage: 2 DOSES
     Route: 058
     Dates: start: 201212
  3. STELARA [Suspect]
     Indication: PSORIASIS
     Dosage: 2 DOSES
     Route: 058
     Dates: start: 201206
  4. DIAZEPAM [Concomitant]
     Route: 065
  5. SUBOXONE [Concomitant]
     Route: 065
  6. ADDERALL [Concomitant]
     Route: 065
  7. ZOCORD [Concomitant]
     Route: 065

REACTIONS (3)
  - Hyperlipidaemia [Not Recovered/Not Resolved]
  - Alanine aminotransferase increased [Unknown]
  - Aspartate aminotransferase increased [Unknown]
